FAERS Safety Report 19844207 (Version 1)
Quarter: 2021Q3

REPORT INFORMATION
  Report Type: Spontaneous
  Country: DE (occurrence: DE)
  Receive Date: 20210916
  Receipt Date: 20210916
  Transmission Date: 20211014
  Serious: Yes (Congenital Anomaly, Other)
  Sender: FDA-Public Use
  Company Number: DE-MYLANLABS-2021M1062243

PATIENT
  Sex: Female

DRUGS (1)
  1. OLMESARTAN MEDOXOMIL. [Suspect]
     Active Substance: OLMESARTAN MEDOXOMIL
     Indication: PRODUCT USED FOR UNKNOWN INDICATION
     Dosage: 5 MILLIGRAM, QD
     Route: 064

REACTIONS (5)
  - Lenticulostriatal vasculopathy [Unknown]
  - Atrial septal defect [Unknown]
  - Hypertension [Unknown]
  - Microcephaly [Unknown]
  - Foetal exposure during pregnancy [Recovered/Resolved]
